FAERS Safety Report 12412570 (Version 1)
Quarter: 2016Q2

REPORT INFORMATION
  Report Type: Spontaneous
  Country: US (occurrence: US)
  Receive Date: 20160527
  Receipt Date: 20160527
  Transmission Date: 20160815
  Serious: No
  Sender: FDA-Public Use
  Company Number: US-009507513-1605USA011419

PATIENT
  Age: 56 Year
  Sex: Female

DRUGS (2)
  1. JANUVIA [Suspect]
     Active Substance: SITAGLIPTIN PHOSPHATE
     Indication: DIABETES MELLITUS
     Dosage: 50 MG/ ONCE A DAY
     Route: 048
     Dates: start: 20160520
  2. MELOXICAM. [Concomitant]
     Active Substance: MELOXICAM
     Route: 048

REACTIONS (5)
  - Headache [Recovered/Resolved]
  - Arthralgia [Recovering/Resolving]
  - Rhinorrhoea [Not Recovered/Not Resolved]
  - Hyperhidrosis [Not Recovered/Not Resolved]
  - Asthenia [Unknown]

NARRATIVE: CASE EVENT DATE: 201605
